FAERS Safety Report 4464260-3 (Version None)
Quarter: 2004Q4

REPORT INFORMATION
  Report Type: 
  Country: None (occurrence: None)
  Receive Date: 20041001
  Receipt Date: 20040922
  Transmission Date: 20050328
  Serious: Yes (Hospitalization)
  Sender: FDA-Public Use
  Company Number: GR-BRISTOL-MYERS SQUIBB COMPANY-12709101

PATIENT
  Age: 73 Year
  Sex: Female
  Weight: 69 kg

DRUGS (7)
  1. MAXUDIN [Suspect]
     Indication: HYPERCHOLESTEROLAEMIA
     Dosage: PATIENT HAD TAKEN PRAVASTATIN OCCASIONALLY FOR YEARS
     Route: 048
     Dates: start: 20040714, end: 20040731
  2. SALOSPIR [Suspect]
     Route: 048
     Dates: start: 20040723
  3. RENITEC [Concomitant]
     Dosage: 1/2 TAB TWICE A DAY
     Route: 048
  4. FLUDEX [Concomitant]
     Dosage: 1 TAB 1 - 3 TIMES PER WEEK
     Route: 048
  5. LOPRESSOR [Concomitant]
     Route: 048
  6. DIAMICRON [Concomitant]
     Dosage: 2 TABS TWICE A DAY
     Route: 048
  7. GLUCOPHAGE [Concomitant]
     Route: 048

REACTIONS (1)
  - AUTOIMMUNE THROMBOCYTOPENIA [None]
